FAERS Safety Report 19948679 (Version 1)
Quarter: 2021Q4

REPORT INFORMATION
  Report Type: Spontaneous
  Country: None (occurrence: US)
  Receive Date: 20211012
  Receipt Date: 20211012
  Transmission Date: 20220303
  Serious: Yes (Other)
  Sender: FDA-Public Use
  Company Number: US-ACELLA PHARMACEUTICALS, LLC-2120479

PATIENT
  Age: 69 Year
  Sex: Female

DRUGS (1)
  1. PHENYTOIN SODIUM [Suspect]
     Active Substance: PHENYTOIN SODIUM
     Indication: Product used for unknown indication
     Route: 065

REACTIONS (9)
  - Gait disturbance [Unknown]
  - Fall [Recovered/Resolved]
  - Vomiting [Unknown]
  - Nausea [Recovered/Resolved]
  - Dysarthria [Unknown]
  - Nystagmus [Unknown]
  - Cerebellar ataxia [Unknown]
  - Ataxia [Unknown]
  - Toxicity to various agents [Unknown]
